FAERS Safety Report 24378721 (Version 3)
Quarter: 2025Q4

REPORT INFORMATION
  Report Type: Spontaneous
  Country: US (occurrence: US)
  Receive Date: 20240930
  Receipt Date: 20251007
  Transmission Date: 20260117
  Serious: No
  Sender: BRISTOL-MYERS SQUIBB COMPANY
  Company Number: US-BRISTOL-MYERS SQUIBB COMPANY-2024-153734

PATIENT
  Age: 47 Year
  Sex: Female

DRUGS (1)
  1. REVLIMID [Suspect]
     Active Substance: LENALIDOMIDE
     Indication: Plasma cell myeloma
     Dosage: FREQUENCY: CYCLIC

REACTIONS (6)
  - Abdominal discomfort [Unknown]
  - Headache [Unknown]
  - Dry eye [Unknown]
  - Product dose omission issue [Unknown]
  - Diarrhoea [Unknown]
  - Product administration interrupted [Unknown]
